FAERS Safety Report 24575638 (Version 1)
Quarter: 2024Q4

REPORT INFORMATION
  Report Type: Spontaneous
  Country: US (occurrence: None)
  Receive Date: 20241101
  Receipt Date: 20241101
  Transmission Date: 20250114
  Serious: Yes (unspecified)
  Sender: Public
  Company Number: None

PATIENT
  Age: 22 Month
  Sex: Male
  Weight: 15.2 kg

DRUGS (1)
  1. CARBOPLATIN [Suspect]
     Active Substance: CARBOPLATIN
     Dosage: 280 MG ONCE INTRAVENOUS?
     Route: 042
     Dates: start: 20241002, end: 20241002

REACTIONS (4)
  - Cough [None]
  - Urticaria [None]
  - Wheezing [None]
  - Oxygen saturation decreased [None]

NARRATIVE: CASE EVENT DATE: 20241002
